FAERS Safety Report 7760871-8 (Version None)
Quarter: 2011Q3

REPORT INFORMATION
  Report Type: 
  Country: None (occurrence: None)
  Receive Date: 20110919
  Receipt Date: 20110915
  Transmission Date: 20111222
  Serious: Yes (Other)
  Sender: FDA-Public Use
  Company Number: BR-PFIZER INC-2011219455

PATIENT
  Age: 57 Year
  Sex: Female
  Weight: 76 kg

DRUGS (4)
  1. LIPITOR [Suspect]
     Indication: BLOOD CHOLESTEROL INCREASED
     Dosage: 1 TABLET OF 20 MG, 1X/DAY
     Route: 048
     Dates: start: 20110707, end: 20110826
  2. BESEROL /CHL/ [Concomitant]
     Indication: MYALGIA
     Dosage: UNSPECIFIED DOSE, 1 TABLET IF THE PAIN GOT TOO STRONG
  3. BESEROL /CHL/ [Concomitant]
     Indication: INTERVERTEBRAL DISC PROTRUSION
  4. LEVOTHYROXINE SODIUM [Concomitant]
     Indication: HYPOTHYROIDISM
     Dosage: 50, UNITS AND FREQUENCY UNK

REACTIONS (3)
  - MYALGIA [None]
  - ARTHRALGIA [None]
  - GAIT DISTURBANCE [None]
